FAERS Safety Report 9036543 (Version 1)
Quarter: 2013Q1

REPORT INFORMATION
  Report Type: Spontaneous
  Country: US (occurrence: None)
  Receive Date: 20130123
  Receipt Date: 20130123
  Transmission Date: 20140127
  Serious: Yes (Death, Life-Threatening, Hospitalization)
  Sender: FDA-Public Use
  Company Number: None

PATIENT
  Age: 74 Year
  Sex: Female
  Weight: 71.66 kg

DRUGS (1)
  1. ALTEPLASE [Suspect]
     Indication: ISCHAEMIC STROKE
     Route: 042
     Dates: start: 20120724, end: 20120724

REACTIONS (5)
  - Nausea [None]
  - Vomiting [None]
  - Depressed level of consciousness [None]
  - Disorientation [None]
  - Cerebral haemorrhage [None]
